FAERS Safety Report 20894842 (Version 2)
Quarter: 2022Q2

REPORT INFORMATION
  Report Type: Spontaneous
  Country: US (occurrence: US)
  Receive Date: 20220531
  Receipt Date: 20220608
  Transmission Date: 20220721
  Serious: Yes (Hospitalization, Other)
  Sender: FDA-Public Use
  Company Number: US-ELI_LILLY_AND_COMPANY-US202205009113

PATIENT
  Age: 73 Year
  Sex: Female
  Weight: 57.15 kg

DRUGS (5)
  1. VERZENIO [Suspect]
     Active Substance: ABEMACICLIB
     Indication: Neoplasm malignant
     Dosage: 150 MG, BID
     Route: 065
     Dates: start: 20220101
  2. VERZENIO [Suspect]
     Active Substance: ABEMACICLIB
     Dosage: 1.5 DOSAGE FORM, DAILY
     Route: 065
  3. VERZENIO [Suspect]
     Active Substance: ABEMACICLIB
     Dosage: 1 DOSAGE FORM, DAILY (HALF PILL IN MORNING AND HALF PILL IN EVENING)
     Route: 065
     Dates: end: 20220414
  4. IBRANCE [Suspect]
     Active Substance: PALBOCICLIB
     Indication: Neoplasm malignant
     Dosage: UNK UNK, UNKNOWN
     Route: 065
  5. WARFARIN [Concomitant]
     Active Substance: WARFARIN
     Indication: Thrombosis

REACTIONS (14)
  - Loss of consciousness [Unknown]
  - Feeding disorder [Unknown]
  - Weight decreased [Unknown]
  - Dyspnoea [Unknown]
  - Pain [Unknown]
  - Nausea [Recovered/Resolved]
  - Diarrhoea [Recovered/Resolved]
  - Lung disorder [Unknown]
  - Ageusia [Unknown]
  - Oropharyngeal pain [Unknown]
  - Dysphonia [Unknown]
  - Taste disorder [Unknown]
  - Aphonia [Unknown]
  - Asthenia [Unknown]

NARRATIVE: CASE EVENT DATE: 20220101
